FAERS Safety Report 18184897 (Version 2)
Quarter: 2020Q3

REPORT INFORMATION
  Report Type: Spontaneous
  Country: AU (occurrence: AU)
  Receive Date: 20200824
  Receipt Date: 20200828
  Transmission Date: 20201103
  Serious: No
  Sender: FDA-Public Use
  Company Number: AU-NOVEN PHARMACEUTICALS, INC.-2020AU004652

PATIENT
  Sex: Female

DRUGS (1)
  1. ESTRADIOL/NORETHISTRONE ACETATE [Suspect]
     Active Substance: ESTRADIOL\NORETHINDRONE ACETATE
     Indication: PRODUCT USED FOR UNKNOWN INDICATION
     Dosage: 50/140, 2/WEEK
     Route: 062
     Dates: start: 2020, end: 2020

REACTIONS (2)
  - Metrorrhagia [Unknown]
  - Nipple pain [Unknown]

NARRATIVE: CASE EVENT DATE: 2020
